FAERS Safety Report 20386422 (Version 1)
Quarter: 2022Q1

REPORT INFORMATION
  Report Type: Spontaneous
  Country: US (occurrence: US)
  Receive Date: 20220127
  Receipt Date: 20220127
  Transmission Date: 20220423
  Serious: No
  Sender: FDA-Public Use
  Company Number: US-009507513-2201USA007184

PATIENT
  Sex: Female

DRUGS (2)
  1. TEMODAR [Suspect]
     Active Substance: TEMOZOLOMIDE
     Dosage: 200 MILLIGRAMS PO DAILY DAYS 10-14
     Route: 048
  2. CAPECITABINE [Suspect]
     Active Substance: CAPECITABINE
     Dosage: 750 MILLIGRAM, BID DAYS 1-14

REACTIONS (6)
  - Asthenia [Unknown]
  - Diarrhoea [Unknown]
  - Dehydration [Unknown]
  - Nausea [Unknown]
  - Arthralgia [Unknown]
  - Disease progression [Unknown]
